FAERS Safety Report 17393137 (Version 1)
Quarter: 2020Q1

REPORT INFORMATION
  Report Type: Spontaneous
  Country: US (occurrence: US)
  Receive Date: 20200208
  Receipt Date: 20200208
  Transmission Date: 20200409
  Serious: Yes (Hospitalization)
  Sender: FDA-Public Use
  Company Number: US-QUAGEN PHARMA LLC-2020QUALIT00017

PATIENT
  Age: 12 Year
  Sex: Male

DRUGS (5)
  1. IPRATROPIUM [Concomitant]
     Active Substance: IPRATROPIUM
  2. MAGNESIUM [Concomitant]
     Active Substance: MAGNESIUM
  3. TERBUTALINE [Interacting]
     Active Substance: TERBUTALINE
  4. ISOFLURANE. [Interacting]
     Active Substance: ISOFLURANE
  5. ALBUTEROL SULFATE SYRUP [Suspect]
     Active Substance: ALBUTEROL SULFATE

REACTIONS (1)
  - Drug ineffective [Unknown]
